FAERS Safety Report 4926069-3 (Version None)
Quarter: 2006Q1

REPORT INFORMATION
  Report Type: 
  Country: None (occurrence: None)
  Receive Date: 20060228
  Receipt Date: 20050808
  Transmission Date: 20060701
  Serious: Yes (Life-Threatening, Other)
  Sender: FDA-Public Use
  Company Number: US-GLAXOSMITHKLINE-A0569262A

PATIENT
  Age: 49 Year
  Sex: Female
  Weight: 77.3 kg

DRUGS (5)
  1. LAMICTAL [Suspect]
     Indication: BIPOLAR DISORDER
     Dosage: 25MG PER DAY
     Route: 048
     Dates: start: 20050330, end: 20050405
  2. ESKALITH CR [Concomitant]
     Indication: BIPOLAR DISORDER
     Route: 048
     Dates: start: 20040601
  3. GEODON [Concomitant]
     Route: 048
     Dates: start: 20040801
  4. KLONOPIN [Concomitant]
     Dosage: .5MG AT NIGHT
     Dates: start: 20020101
  5. NSAID [Concomitant]

REACTIONS (6)
  - BLISTER [None]
  - LYMPHADENOPATHY [None]
  - NERVOUS SYSTEM DISORDER [None]
  - RASH [None]
  - RASH GENERALISED [None]
  - STEVENS-JOHNSON SYNDROME [None]
